FAERS Safety Report 25808910 (Version 1)
Quarter: 2025Q3

REPORT INFORMATION
  Report Type: Spontaneous
  Country: EU (occurrence: EU)
  Receive Date: 20250916
  Receipt Date: 20250916
  Transmission Date: 20251021
  Serious: Yes (Life-Threatening, Hospitalization, Disabling, Other)
  Sender: BRISTOL-MYERS SQUIBB COMPANY
  Company Number: None

PATIENT
  Age: 71 Year
  Sex: Male
  Weight: 78 kg

DRUGS (1)
  1. OPDIVO [Suspect]
     Active Substance: NIVOLUMAB
     Indication: Head and neck cancer
     Dates: start: 20250730, end: 20250730

REACTIONS (4)
  - Amaurosis [Recovered/Resolved with Sequelae]
  - Neurotoxicity [Recovered/Resolved with Sequelae]
  - Retinal artery thrombosis [Recovered/Resolved with Sequelae]
  - Cranial nerve paralysis [Recovered/Resolved with Sequelae]

NARRATIVE: CASE EVENT DATE: 20250805
